FAERS Safety Report 22622000 (Version 1)
Quarter: 2023Q2

REPORT INFORMATION
  Report Type: Spontaneous
  Country: PL (occurrence: PL)
  Receive Date: 20230620
  Receipt Date: 20230620
  Transmission Date: 20230722
  Serious: Yes (Hospitalization)
  Sender: FDA-Public Use
  Company Number: PL-BoehringerIngelheim-2023-BI-243875

PATIENT
  Age: 79 Year
  Sex: Female

DRUGS (9)
  1. EMPAGLIFLOZIN [Suspect]
     Active Substance: EMPAGLIFLOZIN
     Indication: Product used for unknown indication
     Dosage: ONGOING
     Dates: start: 2022
  2. CANDESARTAN [Concomitant]
     Active Substance: CANDESARTAN
     Indication: Product used for unknown indication
     Dosage: ONGOING
     Dates: start: 2022
  3. TORSEMIDE [Concomitant]
     Active Substance: TORSEMIDE
     Indication: Product used for unknown indication
     Dosage: ONGOING
     Dates: start: 2022
  4. metoprolol ZOC [Concomitant]
     Indication: Product used for unknown indication
     Dates: start: 2022, end: 202304
  5. ASPIRIN [Concomitant]
     Active Substance: ASPIRIN
     Indication: Product used for unknown indication
     Dosage: ONGOING
  6. ATORVASTATIN [Concomitant]
     Active Substance: ATORVASTATIN
     Indication: Product used for unknown indication
     Dosage: ONGOING
  7. EZEHRON [Concomitant]
     Indication: Product used for unknown indication
     Dosage: ONGOING
  8. ALLOPURINOL [Concomitant]
     Active Substance: ALLOPURINOL
     Indication: Product used for unknown indication
     Dosage: ONGOING
  9. EPLERENONE [Concomitant]
     Active Substance: EPLERENONE
     Indication: Product used for unknown indication
     Dates: start: 2022, end: 2023

REACTIONS (4)
  - Cardiac failure [Recovered/Resolved]
  - Sinus bradycardia [Recovered/Resolved]
  - Hyperkalaemia [Unknown]
  - Blood creatinine increased [Recovered/Resolved]

NARRATIVE: CASE EVENT DATE: 20220401
